FAERS Safety Report 20502352 (Version 1)
Quarter: 2022Q1

REPORT INFORMATION
  Report Type: Spontaneous
  Country: OM (occurrence: OM)
  Receive Date: 20220222
  Receipt Date: 20220222
  Transmission Date: 20220423
  Serious: Yes (Hospitalization, Other)
  Sender: FDA-Public Use
  Company Number: OM-ORGANON-O2202OMN001531

PATIENT
  Age: 5 Month
  Sex: Female

DRUGS (2)
  1. MOMETASONE FUROATE [Suspect]
     Active Substance: MOMETASONE FUROATE
     Indication: Rash
     Dosage: CONTINUED TO APPLY IN LARGE AMOUNTS OVER LARGE BODY AREAS FOR 2-MONTHS
     Route: 061
  2. BETAMETHASONE DIPROPIONATE\CLOTRIMAZOLE [Suspect]
     Active Substance: BETAMETHASONE DIPROPIONATE\CLOTRIMAZOLE
     Dosage: CONTINUED TO APPLY IN LARGE AMOUNTS OVER LARGE BODY AREAS FOR 2-MONTHS
     Route: 061

REACTIONS (5)
  - Adrenal insufficiency [Unknown]
  - Hyperlactacidaemia [Unknown]
  - Hypokalaemia [Unknown]
  - Hypernatraemia [Unknown]
  - Hypertension [Unknown]
